FAERS Safety Report 18235582 (Version 1)
Quarter: 2020Q3

REPORT INFORMATION
  Report Type: Spontaneous
  Country: RS (occurrence: RS)
  Receive Date: 20200905
  Receipt Date: 20200905
  Transmission Date: 20201103
  Serious: Yes (Other)
  Sender: FDA-Public Use
  Company Number: RS-AMGEN-SRBSP2020140883

PATIENT
  Age: 58 Year
  Sex: Female

DRUGS (6)
  1. NIRYPAN [Concomitant]
     Indication: ARTHRALGIA
  2. NIRYPAN [Concomitant]
     Indication: DERMATOMYOSITIS
     Dosage: 8 MILLIGRAM, QD
     Dates: start: 2016
  3. IMURAN [Concomitant]
     Active Substance: AZATHIOPRINE
     Indication: DERMATOMYOSITIS
     Dosage: 50 MILLIGRAM, QD
     Dates: start: 2016
  4. PROLIA [Suspect]
     Active Substance: DENOSUMAB
     Indication: OSTEOPOROSIS
     Dosage: 60 MILLIGRAM
     Route: 058
     Dates: start: 20200127
  5. NIRYPAN [Concomitant]
     Indication: PYREXIA
  6. NIRYPAN [Concomitant]
     Indication: MYALGIA

REACTIONS (6)
  - Lenticular opacities [Not Recovered/Not Resolved]
  - Arthralgia [Recovered/Resolved]
  - Escherichia urinary tract infection [Recovered/Resolved]
  - Pyrexia [Recovered/Resolved]
  - Myalgia [Recovered/Resolved]
  - Urinary tract infection bacterial [Recovered/Resolved]

NARRATIVE: CASE EVENT DATE: 202002
